FAERS Safety Report 17437702 (Version 1)
Quarter: 2020Q1

REPORT INFORMATION
  Report Type: Spontaneous
  Country: ES (occurrence: ES)
  Receive Date: 20200219
  Receipt Date: 20200219
  Transmission Date: 20200409
  Serious: Yes (Other)
  Sender: FDA-Public Use
  Company Number: ES-TEVA-2020-ES-1188375

PATIENT
  Age: 73 Year
  Sex: Male

DRUGS (1)
  1. GABAPENTINA 300 MG 90 C?PSULAS [Suspect]
     Active Substance: GABAPENTIN
     Indication: ARTHRALGIA
     Dosage: 300 MG
     Route: 048
     Dates: start: 20200127

REACTIONS (3)
  - Dizziness [Not Recovered/Not Resolved]
  - Ataxia [Not Recovered/Not Resolved]
  - Depressed level of consciousness [Not Recovered/Not Resolved]

NARRATIVE: CASE EVENT DATE: 20200128
